FAERS Safety Report 20212498 (Version 1)
Quarter: 2021Q4

REPORT INFORMATION
  Report Type: Spontaneous
  Country: CA (occurrence: CA)
  Receive Date: 20211221
  Receipt Date: 20211221
  Transmission Date: 20220303
  Serious: Yes (Hospitalization, Other)
  Sender: FDA-Public Use
  Company Number: CA-TAKEDA-2021TUS078695

PATIENT
  Sex: Male

DRUGS (6)
  1. PANTOPRAZOLE [Interacting]
     Active Substance: PANTOPRAZOLE
     Indication: Back pain
     Dosage: UNK
     Route: 065
  2. CALQUENCE [Interacting]
     Active Substance: ACALABRUTINIB
     Indication: Chronic lymphocytic leukaemia
     Dosage: 100 MILLIGRAM, Q12H
     Route: 048
  3. CALCIUM CARBONATE [Concomitant]
     Active Substance: CALCIUM CARBONATE
     Dosage: UNK
     Route: 065
  4. CEFPROZIL [Concomitant]
     Active Substance: CEFPROZIL
     Indication: Cystitis
     Dosage: UNK
     Route: 065
  5. CEFIXIME [Concomitant]
     Active Substance: CEFIXIME
     Indication: Back pain
     Dosage: UNK
     Route: 065
  6. NAPROXEN [Concomitant]
     Active Substance: NAPROXEN
     Indication: Back pain
     Dosage: UNK
     Route: 065

REACTIONS (7)
  - Back pain [Unknown]
  - Cystitis [Unknown]
  - Dizziness [Unknown]
  - Drug interaction [Unknown]
  - Gait disturbance [Unknown]
  - Somnolence [Unknown]
  - Tremor [Unknown]
